FAERS Safety Report 25651667 (Version 1)
Quarter: 2025Q3

REPORT INFORMATION
  Report Type: Spontaneous
  Country: JP (occurrence: JP)
  Receive Date: 20250806
  Receipt Date: 20250806
  Transmission Date: 20251020
  Serious: Yes (Hospitalization)
  Sender: AIPING PHARMACEUTICAL
  Company Number: JP-AIPING-2025AILIT00110

PATIENT
  Age: 18 Year
  Sex: Female

DRUGS (10)
  1. SULFAMETHOXAZOLE AND TRIMETHOPRIM [Suspect]
     Active Substance: SULFAMETHOXAZOLE\TRIMETHOPRIM
     Indication: Intestinal pseudo-obstruction
     Route: 065
  2. POTASSIUM ASPARTATE ANHYDROUS [Suspect]
     Active Substance: POTASSIUM ASPARTATE ANHYDROUS
     Indication: Intestinal pseudo-obstruction
     Route: 065
  3. TU-100 [Suspect]
     Active Substance: ASIAN GINSENG\GINGER\ZANTHOXYLUM PIPERITUM FRUIT PULP
     Indication: Intestinal pseudo-obstruction
     Route: 065
  4. UBIDECARENONE [Suspect]
     Active Substance: UBIDECARENONE
     Indication: Intestinal pseudo-obstruction
     Route: 065
  5. ACOTIAMIDE [Suspect]
     Active Substance: ACOTIAMIDE
     Indication: Intestinal pseudo-obstruction
     Route: 065
  6. TRANILAST [Suspect]
     Active Substance: TRANILAST
     Indication: Intestinal pseudo-obstruction
     Route: 065
  7. MOSAPRIDE CITRATE DIHYDRATE [Suspect]
     Active Substance: MOSAPRIDE CITRATE DIHYDRATE
     Indication: Intestinal pseudo-obstruction
     Route: 065
  8. Clostridium butyricum [Concomitant]
     Indication: Intestinal pseudo-obstruction
     Route: 065
  9. LEVOCARNITINE [Concomitant]
     Active Substance: LEVOCARNITINE
     Indication: Intestinal pseudo-obstruction
     Route: 065
  10. OMEGA-3-ACID ETHYL ESTERS [Concomitant]
     Active Substance: OMEGA-3-ACID ETHYL ESTERS
     Indication: Intestinal pseudo-obstruction
     Route: 065

REACTIONS (1)
  - Gastrolithiasis [Recovered/Resolved]
